FAERS Safety Report 22092436 (Version 1)
Quarter: 2023Q1

REPORT INFORMATION
  Report Type: Spontaneous
  Country: GB (occurrence: GB)
  Receive Date: 20230314
  Receipt Date: 20230314
  Transmission Date: 20230418
  Serious: Yes (Other)
  Sender: FDA-Public Use
  Company Number: GB-MHRA-TPP15784170C9240903YC1677791730579

PATIENT
  Age: 55 Year
  Sex: Female
  Weight: 73 kg

DRUGS (5)
  1. MIRTAZAPINE [Suspect]
     Active Substance: MIRTAZAPINE
     Indication: Ill-defined disorder
     Dosage: UNK
     Route: 065
     Dates: start: 20230125
  2. BECONASE AQ [Concomitant]
     Active Substance: BECLOMETHASONE DIPROPIONATE MONOHYDRATE
     Indication: Ill-defined disorder
     Dosage: UNK,TWO PUFFS TWICE DAILY
     Route: 065
     Dates: start: 20181013
  3. LANSOPRAZOLE [Concomitant]
     Active Substance: LANSOPRAZOLE
     Indication: Ill-defined disorder
     Dosage: 1 DOSAGE FORM, EVERY MORNING,TAKE ONE EACH MORNING (TO REDUCE STOMACH ACID)
     Route: 065
     Dates: start: 20211210
  4. MIRTAZAPINE [Concomitant]
     Active Substance: MIRTAZAPINE
     Indication: Ill-defined disorder
     Dosage: UNK,TAKE ONE DAILY AT BEDTIME
     Route: 065
     Dates: start: 20221228, end: 20230125
  5. ALBUTEROL [Concomitant]
     Active Substance: ALBUTEROL
     Indication: Ill-defined disorder
     Dosage: UNK,1 -2 PUFFS FOUR TIMES A DAY AS REQ
     Route: 065
     Dates: start: 20211115, end: 20221212

REACTIONS (1)
  - Insomnia [Recovering/Resolving]

NARRATIVE: CASE EVENT DATE: 20230302
